FAERS Safety Report 7460540-8 (Version None)
Quarter: 2011Q2

REPORT INFORMATION
  Report Type: 
  Country: None (occurrence: None)
  Receive Date: 20110505
  Receipt Date: 20110502
  Transmission Date: 20111010
  Serious: Yes (Death)
  Sender: FDA-Public Use
  Company Number: PHHY2011GR36710

PATIENT
  Age: 50 Year
  Sex: Male

DRUGS (8)
  1. ADEFOVIR DIPIVOXIL KIT [Concomitant]
     Dosage: 10 MG/DL
  2. DOXORUBICIN [Suspect]
     Dosage: 100 MG, DAILY
  3. PREDNISONE [Suspect]
     Dosage: UNK UKN, UNK
  4. CYCLOPHOSPHAMIDE [Suspect]
     Dosage: UNK UKN, UNK
  5. VINCRISTINE [Suspect]
     Dosage: UNK UKN, UNK
  6. LAMIVUDINE [Suspect]
     Dosage: UNK UKN, UNK
  7. RITUXIMAB [Suspect]
     Dosage: UNK UKN, UNK
  8. ENTECAVIR [Concomitant]
     Dosage: 1 MG, DAILY

REACTIONS (7)
  - JAUNDICE [None]
  - MULTI-ORGAN FAILURE [None]
  - HEPATIC ENZYME ABNORMAL [None]
  - HEPATITIS B [None]
  - HEPATIC ENCEPHALOPATHY [None]
  - PROTHROMBIN TIME PROLONGED [None]
  - ASCITES [None]
